FAERS Safety Report 24028874 (Version 3)
Quarter: 2025Q2

REPORT INFORMATION
  Report Type: Spontaneous
  Country: US (occurrence: US)
  Receive Date: 20240628
  Receipt Date: 20250406
  Transmission Date: 20250716
  Serious: Yes (Other)
  Sender: TAKEDA
  Company Number: US-TAKEDA-2024TUS064680

PATIENT
  Sex: Female
  Weight: 72 kg

DRUGS (2)
  1. LIALDA [Suspect]
     Active Substance: MESALAMINE
     Indication: Crohn^s disease
     Dosage: 1.2 GRAM, QID
  2. MESALAMINE [Suspect]
     Active Substance: MESALAMINE
     Indication: Crohn^s disease
     Dosage: 1.2 GRAM, QID

REACTIONS (7)
  - Colitis ulcerative [Unknown]
  - Product availability issue [Unknown]
  - Product use issue [Unknown]
  - Circumstance or information capable of leading to medication error [Unknown]
  - Off label use [Unknown]
  - Product supply issue [Unknown]
  - Drug effect less than expected [Unknown]
